FAERS Safety Report 11852582 (Version 2)
Quarter: 2016Q1

REPORT INFORMATION
  Report Type: Spontaneous
  Country: US (occurrence: US)
  Receive Date: 20151218
  Receipt Date: 20160111
  Transmission Date: 20160526
  Serious: Yes (Other)
  Sender: FDA-Public Use
  Company Number: US-LPDUSPRD-20151027

PATIENT
  Age: 6 Week
  Sex: Male
  Weight: 4.1 kg

DRUGS (4)
  1. ESMOLOL HYDROCHLORIDE INJECTION (0517-1810-01) [Suspect]
     Active Substance: ESMOLOL HYDROCHLORIDE
     Dosage: SEE NARRATIVE
     Route: 042
  2. DIGOXIN. [Suspect]
     Active Substance: DIGOXIN
     Dosage: DOSE NOT PROVIDED
     Route: 065
  3. AMIODARONE [Suspect]
     Active Substance: AMIODARONE
     Dosage: SEE NARRATIVE
     Route: 042
  4. PROPRANOLOL [Concomitant]
     Active Substance: PROPRANOLOL\PROPRANOLOL HYDROCHLORIDE
     Dosage: DOSE NOT STATED
     Route: 065

REACTIONS (2)
  - Bradycardia [Unknown]
  - Cardiac output decreased [Unknown]
